FAERS Safety Report 9372290 (Version 1)
Quarter: 2013Q2

REPORT INFORMATION
  Report Type: Spontaneous
  Country: FR (occurrence: FR)
  Receive Date: 20130627
  Receipt Date: 20130627
  Transmission Date: 20140414
  Serious: Yes (Hospitalization)
  Sender: FDA-Public Use
  Company Number: PHHY2013FR066000

PATIENT
  Age: 87 Year
  Sex: Female

DRUGS (2)
  1. EXFORGE [Suspect]
     Indication: HYPERTENSION
     Dosage: 1 DF (80 MG VALS AND 10 MG AMLO), QD
     Route: 048
     Dates: start: 20080707, end: 20080722
  2. FLUDEX [Suspect]
     Indication: HYPERTENSION
     Dosage: 2.5 MG, QD
     Route: 048
     Dates: start: 20080707, end: 20080722

REACTIONS (6)
  - Hypokalaemia [Recovered/Resolved]
  - Hyponatraemia [Not Recovered/Not Resolved]
  - Malaise [Unknown]
  - Loss of consciousness [Unknown]
  - Vomiting [Unknown]
  - Orthostatic hypotension [Recovered/Resolved]
